FAERS Safety Report 5361546-5 (Version None)
Quarter: 2007Q2

REPORT INFORMATION
  Report Type: 
  Country: None (occurrence: None)
  Receive Date: 20070619
  Receipt Date: 20070605
  Transmission Date: 20071010
  Serious: Yes (Hospitalization)
  Sender: FDA-Public Use
  Company Number: PHBS2007JP07963

PATIENT
  Age: 70 Year
  Sex: Male
  Weight: 51 kg

DRUGS (12)
  1. COMTAN [Suspect]
     Indication: PARKINSON'S DISEASE
     Dosage: 100 MG, QID
     Route: 048
     Dates: start: 20070419, end: 20070422
  2. HYPEN [Suspect]
     Indication: BACK PAIN
     Dosage: 400 MG, QD
     Route: 048
     Dates: start: 20070314, end: 20070422
  3. MARZULENE S [Concomitant]
     Dosage: 1.34 G/D
     Route: 048
     Dates: start: 20070314, end: 20070422
  4. NEO DOPASTON [Concomitant]
     Dosage: 500 MG/D
     Route: 048
     Dates: start: 19980101, end: 20070422
  5. CABASER [Concomitant]
     Dosage: 5 MG/D
     Route: 048
     Dates: start: 19980101, end: 20070422
  6. CYANOCOBALAMIN [Concomitant]
     Dosage: 1.5 MG/D
     Route: 048
     Dates: start: 20070331, end: 20070422
  7. SYMMETREL [Concomitant]
     Dosage: 150 MG/D
     Route: 048
     Dates: start: 20070101, end: 20070422
  8. HARNAL [Concomitant]
     Dosage: 0.1 MG/D
     Route: 048
     Dates: start: 20070101, end: 20070422
  9. LENDORMIN [Concomitant]
     Route: 048
     Dates: start: 20070228, end: 20070422
  10. MUCODYNE [Concomitant]
     Dosage: 1500 MG/D
     Route: 048
     Dates: start: 20070201, end: 20070422
  11. EXCEGRAN [Concomitant]
     Dosage: 200 MG/D
     Route: 048
     Dates: start: 20070130, end: 20070422
  12. SELBEX [Concomitant]
     Dosage: 1.5 G/D
     Route: 048
     Dates: start: 20070129, end: 20070422

REACTIONS (13)
  - DISSEMINATED INTRAVASCULAR COAGULATION [None]
  - FUNGAL INFECTION [None]
  - GASTRITIS EROSIVE [None]
  - GASTRITIS HAEMORRHAGIC [None]
  - HAEMATEMESIS [None]
  - NEUROLEPTIC MALIGNANT SYNDROME [None]
  - OESOPHAGITIS HAEMORRHAGIC [None]
  - PNEUMONIA ASPIRATION [None]
  - PYREXIA [None]
  - REFLUX OESOPHAGITIS [None]
  - SEPSIS [None]
  - STOMACH DISCOMFORT [None]
  - WHITE BLOOD CELL COUNT DECREASED [None]
